FAERS Safety Report 19084789 (Version 7)
Quarter: 2021Q2

REPORT INFORMATION
  Report Type: Report from Study
  Country: US (occurrence: US)
  Receive Date: 20210401
  Receipt Date: 20210521
  Transmission Date: 20210717
  Serious: Yes (Other)
  Sender: FDA-Public Use
  Company Number: NVSC2021US074408

PATIENT
  Sex: Female

DRUGS (4)
  1. ENTRESTO [Suspect]
     Active Substance: SACUBITRIL\VALSARTAN
     Dosage: 50 MG, BID (24/26 MG)
     Route: 048
  2. ENTRESTO [Suspect]
     Active Substance: SACUBITRIL\VALSARTAN
     Dosage: 50 MG, BID (24/26 MG)
     Route: 048
  3. ENTRESTO [Suspect]
     Active Substance: SACUBITRIL\VALSARTAN
     Dosage: 50 MG, BID (24/26 MG)
     Route: 048
  4. ENTRESTO [Suspect]
     Active Substance: SACUBITRIL\VALSARTAN
     Indication: PRODUCT USED FOR UNKNOWN INDICATION
     Dosage: 100 MG, BID (49/51 MG)
     Route: 048

REACTIONS (15)
  - Eye swelling [Unknown]
  - Photophobia [Unknown]
  - Tunnel vision [Unknown]
  - Visual impairment [Unknown]
  - Weight decreased [Not Recovered/Not Resolved]
  - Decreased appetite [Unknown]
  - Headache [Not Recovered/Not Resolved]
  - Photosensitivity reaction [Unknown]
  - Gait disturbance [Unknown]
  - Dizziness [Unknown]
  - Diabetic glaucoma [Unknown]
  - Feeling abnormal [Unknown]
  - Hypotension [Not Recovered/Not Resolved]
  - Eye pain [Unknown]
  - Fatigue [Unknown]
